FAERS Safety Report 19132167 (Version 1)
Quarter: 2021Q2

REPORT INFORMATION
  Report Type: Spontaneous
  Country: GB (occurrence: GB)
  Receive Date: 20210414
  Receipt Date: 20210414
  Transmission Date: 20210717
  Serious: Yes (Hospitalization)
  Sender: FDA-Public Use
  Company Number: GB-009507513-2104GBR001520

PATIENT
  Age: 57 Year
  Sex: Female

DRUGS (2)
  1. PEMBROLIZUMAB. [Suspect]
     Active Substance: PEMBROLIZUMAB
     Indication: MALIGNANT MELANOMA
     Dosage: 400MG
     Route: 042
     Dates: start: 20210401
  2. PEMBROLIZUMAB. [Suspect]
     Active Substance: PEMBROLIZUMAB
     Dosage: 400MG
     Route: 042
     Dates: start: 20210402

REACTIONS (5)
  - Paraesthesia oral [Unknown]
  - Respiratory rate increased [Unknown]
  - Pyrexia [Unknown]
  - Pruritus [Unknown]
  - Blood pressure increased [Unknown]

NARRATIVE: CASE EVENT DATE: 20210401
